FAERS Safety Report 18417643 (Version 1)
Quarter: 2020Q4

REPORT INFORMATION
  Report Type: Spontaneous
  Country: US (occurrence: US)
  Receive Date: 20201022
  Receipt Date: 20201022
  Transmission Date: 20210114
  Serious: No
  Sender: FDA-Public Use
  Company Number: 2020SGN02857

PATIENT
  Sex: Female

DRUGS (2)
  1. TUKYSA [Suspect]
     Active Substance: TUCATINIB
     Indication: BREAST CANCER FEMALE
     Dosage: UNK, BID
  2. ENSURE [Concomitant]
     Active Substance: AMINO ACIDS\DEXTROSE\ELECTROLYTES NOS\SOYBEAN OIL\VITAMINS

REACTIONS (14)
  - Abdominal pain upper [Recovered/Resolved]
  - Fatigue [Unknown]
  - Erythema [Recovering/Resolving]
  - Product dose omission issue [Unknown]
  - Nodule [Unknown]
  - Diarrhoea [Recovering/Resolving]
  - Blister [Recovered/Resolved]
  - Renal disorder [Recovering/Resolving]
  - Palmar erythema [Recovering/Resolving]
  - Rhinorrhoea [Unknown]
  - Unevaluable event [Recovering/Resolving]
  - Vomiting [Recovered/Resolved]
  - Illness [Unknown]
  - Oropharyngeal pain [Unknown]
